FAERS Safety Report 4681361-5 (Version None)
Quarter: 2005Q2

REPORT INFORMATION
  Report Type: 
  Country: None (occurrence: None)
  Receive Date: 20050601
  Receipt Date: 20050517
  Transmission Date: 20051028
  Serious: Yes (Death, Other)
  Sender: FDA-Public Use
  Company Number: 8010384

PATIENT
  Sex: Male
  Weight: 70 kg

DRUGS (6)
  1. LORTAB [Suspect]
     Dates: end: 20050328
  2. METHADONE HCL [Suspect]
     Dates: end: 20050328
  3. FENTANYL [Suspect]
     Dates: end: 20050328
  4. FLUOXETINE [Concomitant]
  5. ALPRAZOLAM [Concomitant]
  6. OXYCODONE HCL [Concomitant]

REACTIONS (1)
  - OVERDOSE [None]
